FAERS Safety Report 8935273 (Version 1)
Quarter: 2012Q4

REPORT INFORMATION
  Report Type: 
  Country: IT (occurrence: IT)
  Receive Date: 20121129
  Receipt Date: 20121129
  Transmission Date: 20130627
  Serious: Yes (Hospitalization)
  Sender: FDA-Public Use
  Company Number: IT-ASTRAZENECA-2012SE88180

PATIENT
  Age: 47 Year
  Sex: Female

DRUGS (2)
  1. SINESTIC TURBOHALER [Suspect]
     Indication: ASTHMA
     Dosage: 160 mcg/4.5 mcg, 1x2 inhalation/day
     Route: 055
     Dates: start: 201205, end: 20120511
  2. AERIUS [Concomitant]

REACTIONS (1)
  - Supraventricular tachycardia [Recovered/Resolved]
